FAERS Safety Report 7207887-8 (Version None)
Quarter: 2010Q4

REPORT INFORMATION
  Report Type: 
  Country: None (occurrence: None)
  Receive Date: 20101221
  Receipt Date: 20101130
  Transmission Date: 20110411
  Serious: Yes (Hospitalization)
  Sender: FDA-Public Use
  Company Number: ZYD-10-AE-291

PATIENT
  Age: 75 Year
  Sex: Male

DRUGS (1)
  1. LAMOTRIGINE [Suspect]
     Indication: GRAND MAL CONVULSION
     Dosage: 100MG - DAILY

REACTIONS (14)
  - CYTOLYTIC HEPATITIS [None]
  - DRUG RASH WITH EOSINOPHILIA AND SYSTEMIC SYMPTOMS [None]
  - EOSINOPHILIA [None]
  - HEPATITIS CHOLESTATIC [None]
  - HEPATOMEGALY [None]
  - LYMPHADENOPATHY [None]
  - MULTI-ORGAN FAILURE [None]
  - OLIGURIA [None]
  - PANCREATITIS ACUTE [None]
  - PNEUMONIA STAPHYLOCOCCAL [None]
  - PYREXIA [None]
  - RASH MACULO-PAPULAR [None]
  - RENAL FAILURE [None]
  - SEPTIC SHOCK [None]
